FAERS Safety Report 12721390 (Version 1)
Quarter: 2016Q3

REPORT INFORMATION
  Report Type: Spontaneous
  Country: JP (occurrence: JP)
  Receive Date: 20160907
  Receipt Date: 20160907
  Transmission Date: 20161109
  Serious: Yes (Other)
  Sender: FDA-Public Use
  Company Number: JP-PFIZER INC-2016418004

PATIENT
  Age: 71 Year
  Sex: Male

DRUGS (3)
  1. IFOSFAMIDE. [Suspect]
     Active Substance: IFOSFAMIDE
     Indication: SARCOMA
     Dosage: 2.5 G/M2, CYCLIC (ON DAYS 1-4, EVERY 3 WEEKS)
  2. PAZOPANIB [Suspect]
     Active Substance: PAZOPANIB
     Indication: SARCOMA
     Dosage: 800 MG, DAILY
  3. DOXORUBICIN [Suspect]
     Active Substance: DOXORUBICIN
     Indication: SARCOMA
     Dosage: 25 MG/ML, CYCLIC (ON DAYS 1-3, EVERY 3 WEEKS)

REACTIONS (3)
  - Pulmonary necrosis [Unknown]
  - Neutropenia [Unknown]
  - Fatigue [Unknown]
